FAERS Safety Report 16285152 (Version 1)
Quarter: 2019Q2

REPORT INFORMATION
  Report Type: Spontaneous
  Country: US (occurrence: US)
  Receive Date: 20190508
  Receipt Date: 20190508
  Transmission Date: 20190711
  Serious: Yes (Hospitalization, Other)
  Sender: FDA-Public Use
  Company Number: US-ALKEM LABORATORIES LIMITED-US-ALKEM-2019-03730

PATIENT
  Age: 39 Year
  Sex: Female

DRUGS (4)
  1. EXEMESTANE. [Concomitant]
     Active Substance: EXEMESTANE
     Indication: METASTASIS
     Dosage: 25 MILLIGRAM, OD
     Route: 065
     Dates: start: 200711
  2. TAMOXIFEN [Concomitant]
     Active Substance: TAMOXIFEN
     Indication: INFLAMMATORY CARCINOMA OF THE BREAST
     Dosage: 20 MILLIGRAM, OD
     Route: 065
  3. LETROZOLE. [Suspect]
     Active Substance: LETROZOLE
     Indication: METASTASES TO THE MEDIASTINUM
     Dosage: 2.5 MILLIGRAM, OD
     Route: 065
     Dates: start: 200703
  4. CAPECITABINE. [Suspect]
     Active Substance: CAPECITABINE
     Indication: BREAST CANCER
     Dosage: 1000 MILLIGRAM/SQ. METER, BID
     Route: 065
     Dates: start: 200711

REACTIONS (4)
  - Cardiogenic shock [Recovered/Resolved]
  - Cardiac failure [Recovered/Resolved]
  - Neoplasm progression [Unknown]
  - Therapy partial responder [Unknown]
